FAERS Safety Report 4293288-1 (Version None)
Quarter: 2004Q1

REPORT INFORMATION
  Report Type: 
  Country: None (occurrence: None)
  Receive Date: 20040126
  Receipt Date: 20031024
  Transmission Date: 20041129
  Serious: No
  Sender: FDA-Public Use
  Company Number: USA031050727

PATIENT
  Age: 62 Year
  Sex: Female

DRUGS (9)
  1. FORTEO [Suspect]
     Indication: BONE DENSITY DECREASED
     Dates: start: 20031001
  2. CELEBREX [Concomitant]
  3. MYSOLINE [Concomitant]
  4. IMITREX [Concomitant]
  5. BUTALBITAL [Concomitant]
  6. ESGIC-PLUS [Concomitant]
  7. FIORINAL [Concomitant]
  8. MULTIVITAMIN [Concomitant]
  9. ACTONEL [Concomitant]

REACTIONS (5)
  - CHEST EXPANSION DECREASED [None]
  - COUGH [None]
  - DYSPHONIA [None]
  - DYSPNOEA [None]
  - INSOMNIA [None]
